FAERS Safety Report 13924344 (Version 1)
Quarter: 2017Q3

REPORT INFORMATION
  Report Type: Spontaneous
  Country: US (occurrence: None)
  Receive Date: 20170830
  Receipt Date: 20170830
  Transmission Date: 20171127
  Serious: Yes (Disabling)
  Sender: FDA-Public Use
  Company Number: None

PATIENT
  Age: 59 Year
  Sex: Female
  Weight: 74.84 kg

DRUGS (8)
  1. PANTOPRAZOLE [Concomitant]
     Active Substance: PANTOPRAZOLE
  2. SIMVASTATIN. [Concomitant]
     Active Substance: SIMVASTATIN
  3. PREDNISONE. [Concomitant]
     Active Substance: PREDNISONE
  4. SULFASALAZINE DELAYED-RELEASE [Concomitant]
     Active Substance: SULFASALAZINE
  5. LEVOFLOXACIN HEMIHYDRATE [Suspect]
     Active Substance: LEVOFLOXACIN
     Indication: SINUSITIS
     Route: 055
     Dates: start: 20140227, end: 20140401
  6. MELOXICAM. [Concomitant]
     Active Substance: MELOXICAM
  7. LEVOFLOXACIN HEMIHYDRATE [Suspect]
     Active Substance: LEVOFLOXACIN
     Indication: STAPHYLOCOCCAL INFECTION
     Route: 055
     Dates: start: 20140227, end: 20140401
  8. CIPROFLOXACIN. [Suspect]
     Active Substance: CIPROFLOXACIN
     Indication: SINUSITIS
     Route: 048
     Dates: start: 20140212, end: 20140222

REACTIONS (12)
  - Pain in extremity [None]
  - Panic attack [None]
  - Plantar fasciitis [None]
  - Neck pain [None]
  - Psoriatic arthropathy [None]
  - Trigger finger [None]
  - Gait inability [None]
  - Fatigue [None]
  - Tendonitis [None]
  - Back pain [None]
  - Depression [None]
  - Carpal tunnel syndrome [None]

NARRATIVE: CASE EVENT DATE: 20140222
